FAERS Safety Report 8666453 (Version 3)
Quarter: 2012Q4

REPORT INFORMATION
  Report Type: 
  Country: GB (occurrence: GB)
  Receive Date: 20120716
  Receipt Date: 20121030
  Transmission Date: 20130627
  Serious: Yes (Hospitalization)
  Sender: FDA-Public Use
  Company Number: GB-WATSON-2012-13486

PATIENT
  Age: 21 Year
  Sex: Female
  Weight: 100 kg

DRUGS (3)
  1. LAMOTRIGINE (UNKNOWN) [Suspect]
     Indication: EPILEPSY
     Dosage: 300 mg, daily
     Route: 065
     Dates: start: 201008
  2. LAMOTRIGINE (UNKNOWN) [Suspect]
     Dosage: UNK
     Route: 067
  3. FOLIC ACID [Concomitant]
     Indication: PRODUCT USED FOR UNKNOWN INDICATION
     Dosage: 5 mg, daily
     Route: 048

REACTIONS (4)
  - Convulsion [Unknown]
  - Live birth [Unknown]
  - Exposure during pregnancy [Unknown]
  - Exposure via body fluid [Unknown]
